FAERS Safety Report 7041663-4 (Version None)
Quarter: 2010Q4

REPORT INFORMATION
  Report Type: 
  Country: None (occurrence: None)
  Receive Date: 20101013
  Receipt Date: 20101007
  Transmission Date: 20110411
  Serious: Yes (Other)
  Sender: FDA-Public Use
  Company Number: FR-ROCHE-731931

PATIENT
  Sex: Male

DRUGS (2)
  1. ROACTEMRA [Suspect]
     Indication: RHEUMATOID ARTHRITIS
     Route: 042
     Dates: start: 20100511, end: 20100706
  2. SALAZOPYRINE [Concomitant]

REACTIONS (1)
  - VASCULAR PURPURA [None]
